FAERS Safety Report 12890717 (Version 1)
Quarter: 2016Q4

REPORT INFORMATION
  Report Type: Spontaneous
  Country: US (occurrence: US)
  Receive Date: 20161027
  Receipt Date: 20161027
  Transmission Date: 20170207
  Serious: No
  Sender: FDA-Public Use
  Company Number: US-JAZZ-2016-US-015808

PATIENT
  Sex: Female

DRUGS (16)
  1. XYREM [Suspect]
     Active Substance: SODIUM OXYBATE
     Indication: CATAPLEXY
     Dosage: DOSE ADJUSTMENTS
     Route: 048
     Dates: start: 201607, end: 20160812
  2. XYREM [Suspect]
     Active Substance: SODIUM OXYBATE
     Dosage: 4.5 G, BID
     Route: 048
     Dates: start: 20160813
  3. NUVIGIL [Concomitant]
     Active Substance: ARMODAFINIL
  4. XYREM [Suspect]
     Active Substance: SODIUM OXYBATE
     Indication: NARCOLEPSY
     Dosage: 2.25 G, BID
     Route: 048
     Dates: start: 201607, end: 201607
  5. BOTOX [Concomitant]
     Active Substance: ONABOTULINUMTOXINA
  6. HUMIRA [Concomitant]
     Active Substance: ADALIMUMAB
  7. ZOLOFT [Concomitant]
     Active Substance: SERTRALINE HYDROCHLORIDE
  8. GABAPENTIN. [Concomitant]
     Active Substance: GABAPENTIN
  9. ANAPROX [Concomitant]
     Active Substance: NAPROXEN SODIUM
  10. PERCOCET [Concomitant]
     Active Substance: ACETAMINOPHEN\OXYCODONE HYDROCHLORIDE
  11. SENNA LAXATIVE AND DOCUSATE SODIUM [Concomitant]
  12. TOPAMAX [Concomitant]
     Active Substance: TOPIRAMATE
  13. COMPAZINE [Concomitant]
     Active Substance: PROCHLORPERAZINE MALEATE
  14. FERROUS SULFATE EC [Concomitant]
  15. REQUIP XL [Concomitant]
     Active Substance: ROPINIROLE HYDROCHLORIDE
  16. ULTRAM ER [Concomitant]
     Active Substance: TRAMADOL HYDROCHLORIDE

REACTIONS (5)
  - Paraesthesia [Not Recovered/Not Resolved]
  - Ligament rupture [Unknown]
  - Chest discomfort [Not Recovered/Not Resolved]
  - Hypoaesthesia [Unknown]
  - Nervousness [Not Recovered/Not Resolved]

NARRATIVE: CASE EVENT DATE: 2016
